FAERS Safety Report 7792599-2 (Version None)
Quarter: 2011Q4

REPORT INFORMATION
  Report Type: 
  Country: None (occurrence: None)
  Receive Date: 20111003
  Receipt Date: 20110927
  Transmission Date: 20120403
  Serious: Yes (Other)
  Sender: FDA-Public Use
  Company Number: JP-PFIZER INC-2011229081

PATIENT
  Sex: Female

DRUGS (7)
  1. OLMESARTAN MEDOXOMIL [Concomitant]
  2. NEUROTROPIN [Concomitant]
  3. ISOSORBIDE MONONITRATE [Concomitant]
  4. METHYCOBAL [Concomitant]
  5. TENORMIN [Concomitant]
  6. AZULFIDINE [Suspect]
     Indication: RHEUMATOID ARTHRITIS
     Route: 048
  7. OVAHORMON [Concomitant]

REACTIONS (3)
  - GLOMERULAR FILTRATION RATE ABNORMAL [None]
  - RENAL IMPAIRMENT [None]
  - BLOOD CREATININE INCREASED [None]
